FAERS Safety Report 14766295 (Version 2)
Quarter: 2018Q2

REPORT INFORMATION
  Report Type: Spontaneous
  Country: US (occurrence: US)
  Receive Date: 20180416
  Receipt Date: 20180416
  Transmission Date: 20180711
  Serious: No
  Sender: FDA-Public Use
  Company Number: US-ASTELLAS-2017US039137

PATIENT
  Sex: Male

DRUGS (2)
  1. PROGRAF [Suspect]
     Active Substance: TACROLIMUS\TACROLIMUS ANHYDROUS
     Indication: PYELONEPHRITIS CHRONIC
     Dosage: 1 MG, ONCE DAILY IN EVENING
     Route: 048
  2. PROGRAF [Suspect]
     Active Substance: TACROLIMUS\TACROLIMUS ANHYDROUS
     Indication: PYELONEPHRITIS CHRONIC
     Dosage: 2 MG, ONCE DAILY IN AM
     Route: 048

REACTIONS (1)
  - Off label use [Unknown]
